FAERS Safety Report 5346916-3 (Version None)
Quarter: 2007Q2

REPORT INFORMATION
  Report Type: 
  Country: None (occurrence: None)
  Receive Date: 20070426
  Receipt Date: 20070131
  Transmission Date: 20071010
  Serious: No
  Sender: FDA-Public Use
  Company Number: 2007-BP-01592BP

PATIENT
  Sex: Male

DRUGS (3)
  1. APTIVUS [Suspect]
     Indication: HIV INFECTION
     Dosage: 500/200 BID, PO
     Route: 048
     Dates: start: 20060401
  2. TRUVADA [Concomitant]
  3. AZT [Concomitant]

REACTIONS (3)
  - FATIGUE [None]
  - HEPATIC ENZYME INCREASED [None]
  - NAUSEA [None]
